FAERS Safety Report 16970967 (Version 4)
Quarter: 2021Q3

REPORT INFORMATION
  Report Type: Spontaneous
  Country: JP (occurrence: JP)
  Receive Date: 20191029
  Receipt Date: 20210804
  Transmission Date: 20211014
  Serious: Yes (Hospitalization, Other)
  Sender: FDA-Public Use
  Company Number: JP-JNJFOC-20191031758

PATIENT
  Sex: Female

DRUGS (3)
  1. LONASEN [Concomitant]
     Active Substance: BLONANSERIN
     Route: 048
     Dates: start: 201910
  2. INVEGA [Suspect]
     Active Substance: PALIPERIDONE
     Indication: PRODUCT USED FOR UNKNOWN INDICATION
     Route: 048
     Dates: start: 2019
  3. LONASEN [Concomitant]
     Active Substance: BLONANSERIN
     Route: 048
     Dates: end: 201910

REACTIONS (5)
  - Soliloquy [Unknown]
  - Hospitalisation [Unknown]
  - Psychiatric symptom [Unknown]
  - Weight increased [Unknown]
  - Thinking abnormal [Unknown]
